FAERS Safety Report 12644438 (Version 1)
Quarter: 2016Q3

REPORT INFORMATION
  Report Type: Report from Study
  Country: DE (occurrence: DE)
  Receive Date: 20160811
  Receipt Date: 20160811
  Transmission Date: 20161109
  Serious: Yes (Other)
  Sender: FDA-Public Use
  Company Number: PHHY2013DE084921

PATIENT
  Age: 55 Year
  Sex: Female
  Weight: 78 kg

DRUGS (23)
  1. PREDNISOLONE. [Concomitant]
     Active Substance: PREDNISOLONE
     Dosage: 30 MG, UNK
     Route: 065
  2. XOLAIR [Suspect]
     Active Substance: OMALIZUMAB
     Indication: ASTHMA
     Dosage: 450 MG, EVERY 4 WEEKS
     Route: 058
     Dates: start: 20130121
  3. ALVESCO [Concomitant]
     Active Substance: CICLESONIDE
     Indication: ASTHMA
     Dosage: 80 UG, UNK
     Route: 055
     Dates: start: 20130501
  4. LORATADINE. [Concomitant]
     Active Substance: LORATADINE
     Indication: RHINITIS
     Dosage: 10 MG, QD
     Route: 065
     Dates: start: 20130203
  5. FELODIPINE. [Concomitant]
     Active Substance: FELODIPINE
     Indication: HYPERTENSION
     Dosage: 5 MG, UNK
     Route: 065
     Dates: start: 20130625, end: 20130706
  6. PANTOZOL [Concomitant]
     Active Substance: PANTOPRAZOLE SODIUM
     Indication: GASTRITIS
     Dosage: 20 MG, UNK
     Route: 065
     Dates: start: 20130501
  7. IBUHEXAL - SLOW RELEASE [Concomitant]
     Indication: SPINAL PAIN
     Dosage: 1200 MG, UNK
     Route: 065
     Dates: start: 20130501
  8. DOXYCYCLINE. [Concomitant]
     Active Substance: DOXYCYCLINE
     Indication: BRONCHITIS
     Dosage: 100 MG, UNK
     Route: 065
     Dates: start: 20150216
  9. DECORTIN [Concomitant]
     Active Substance: PREDNISONE
     Indication: ASTHMA
     Dosage: 20-5 MG, QD
     Route: 065
     Dates: start: 20130513, end: 20130612
  10. SINGULAIR [Concomitant]
     Active Substance: MONTELUKAST SODIUM
     Indication: ASTHMA
     Dosage: 10 MG, UNK
     Route: 065
     Dates: start: 20100307
  11. GABRILEN [Concomitant]
     Indication: INTERVERTEBRAL DISC PROTRUSION
     Dosage: 200 MG, UNK
     Route: 065
     Dates: start: 20141204, end: 20141207
  12. DEXAMETHASONE. [Concomitant]
     Active Substance: DEXAMETHASONE
     Indication: INTERVERTEBRAL DISC PROTRUSION
     Dosage: 4 MG, UNK
     Route: 065
     Dates: start: 20141204, end: 20141207
  13. PREDNISOLONE. [Concomitant]
     Active Substance: PREDNISOLONE
     Indication: ASTHMA
     Dosage: 30 MG, UNK
     Route: 065
  14. PREDNISOLONE. [Concomitant]
     Active Substance: PREDNISOLONE
     Dosage: 50 MG, UNK
     Dates: start: 20150623, end: 20150627
  15. SYMBICORT [Concomitant]
     Active Substance: BUDESONIDE\FORMOTEROL FUMARATE DIHYDRATE
     Indication: ASTHMA
     Dosage: 2 DF (2X320/9), QD
     Route: 055
     Dates: start: 20130809
  16. PREDNISOLONE. [Concomitant]
     Active Substance: PREDNISOLONE
     Dosage: 40 MG, UNK
     Route: 065
  17. FORMOTEROL [Suspect]
     Active Substance: FORMOTEROL
     Indication: ASTHMA
     Dosage: 24 UG, UNK
     Route: 055
     Dates: start: 20130501
  18. VENTILASTIN [Concomitant]
     Active Substance: ALBUTEROL SULFATE
     Indication: ASTHMA
     Dosage: UNK, PRN
     Route: 055
     Dates: start: 20030310
  19. AMLODIPINE [Concomitant]
     Active Substance: AMLODIPINE BESYLATE
     Indication: HYPERTONIA
     Dosage: 10 MG, UNK
     Route: 065
     Dates: start: 20130507, end: 20130625
  20. DECORTIN [Concomitant]
     Active Substance: PREDNISONE
     Dosage: 20 MG, UNK
     Route: 065
  21. VALSARTAN. [Concomitant]
     Active Substance: VALSARTAN
     Indication: HYPERTENSION
     Dosage: 40 MG, UNK
     Route: 065
     Dates: start: 20130710
  22. DOXYCYCLINE. [Concomitant]
     Active Substance: DOXYCYCLINE
     Dosage: 100 UNK, UNK
     Route: 065
     Dates: start: 20160727, end: 20160805
  23. PREDNISOLONE. [Concomitant]
     Active Substance: PREDNISOLONE
     Dosage: 30 MG, UNK
     Route: 065
     Dates: start: 20160401, end: 20160408

REACTIONS (5)
  - Asthma [Recovered/Resolved]
  - Asthma [Recovered/Resolved]
  - Hypertension [Not Recovered/Not Resolved]
  - Asthma [Recovered/Resolved]
  - Asthma [Recovered/Resolved]

NARRATIVE: CASE EVENT DATE: 20130505
